FAERS Safety Report 5703430-0 (Version None)
Quarter: 2008Q2

REPORT INFORMATION
  Report Type: 
  Country: None (occurrence: None)
  Receive Date: 20080411
  Receipt Date: 20080331
  Transmission Date: 20081010
  Serious: Yes (Other)
  Sender: FDA-Public Use
  Company Number: BR-PFIZER INC-2008029265

PATIENT
  Age: 46 Year
  Sex: Female

DRUGS (4)
  1. ZIPRASIDONE (CAPS) [Suspect]
     Dosage: DAILY DOSE:160MG
  2. CLOZAPINE [Suspect]
  3. OLANZAPINE [Suspect]
     Dosage: DAILY DOSE:10MG
  4. RISPERIDONE [Suspect]
     Dosage: DAILY DOSE:3MG

REACTIONS (3)
  - LEUKOPENIA [None]
  - LYMPHOMA [None]
  - NEUTROPENIA [None]
